FAERS Safety Report 13209823 (Version 1)
Quarter: 2017Q1

REPORT INFORMATION
  Report Type: Spontaneous
  Country: US (occurrence: US)
  Receive Date: 20170209
  Receipt Date: 20170209
  Transmission Date: 20170428
  Serious: No
  Sender: FDA-Public Use
  Company Number: None

PATIENT
  Sex: Female

DRUGS (1)
  1. IBRANCE [Suspect]
     Active Substance: PALBOCICLIB
     Indication: BREAST CANCER FEMALE
     Dosage: FREQUENCY - DAILY X 21 DAYS ON?OFF 7D
     Route: 048
     Dates: start: 20161026, end: 20170131

REACTIONS (1)
  - Neutropenia [None]
